FAERS Safety Report 7927900-X (Version None)
Quarter: 2011Q4

REPORT INFORMATION
  Report Type: 
  Country: None (occurrence: None)
  Receive Date: 20111118
  Receipt Date: 20111109
  Transmission Date: 20120403
  Serious: Yes (Death, Life-Threatening)
  Sender: FDA-Public Use
  Company Number: JP-JNJFOC-20111001225

PATIENT
  Sex: Male
  Weight: 87 kg

DRUGS (37)
  1. REMICADE [Suspect]
     Indication: CROHN'S DISEASE
     Dosage: 46 DOSES
     Route: 042
     Dates: start: 20060811, end: 20110622
  2. PENTASA [Concomitant]
     Route: 048
     Dates: start: 19960823
  3. AMARYL [Concomitant]
     Route: 048
  4. LIPIDIL [Concomitant]
     Route: 048
  5. BASEN [Concomitant]
     Route: 048
     Dates: start: 20060607
  6. REMICADE [Suspect]
     Route: 042
     Dates: start: 20060111, end: 20060222
  7. EPADEL [Concomitant]
     Route: 048
     Dates: start: 20100811
  8. PREDNISOLONE [Concomitant]
     Route: 048
  9. PREDNISOLONE [Concomitant]
     Route: 048
     Dates: start: 19980101
  10. CELESTAMINE TAB [Concomitant]
     Route: 048
     Dates: start: 20060607
  11. LAC-B [Concomitant]
     Dosage: IMMEDIATELY AFTER EVERY MEAL
     Route: 048
     Dates: start: 20060111
  12. ELENTAL [Concomitant]
     Dosage: DAILY DOSE 8 PAC
     Route: 048
     Dates: start: 19980101
  13. CEREKINON [Concomitant]
     Route: 048
     Dates: start: 19960329
  14. REMICADE [Suspect]
     Route: 042
     Dates: start: 20060702
  15. REMICADE [Suspect]
     Route: 042
     Dates: start: 20110727, end: 20110831
  16. PENTASA [Concomitant]
     Route: 048
     Dates: start: 19980304
  17. PENTASA [Concomitant]
     Dosage: IMMEDIATELY AFTER EVERY MEAL
     Route: 048
     Dates: start: 20110111
  18. RESTAMIN [Concomitant]
     Route: 065
     Dates: start: 20060607
  19. PREDNISOLONE [Concomitant]
     Route: 048
     Dates: start: 20060104, end: 20060308
  20. GLYBURIDE [Concomitant]
     Route: 048
     Dates: start: 20051130
  21. IMURAN [Concomitant]
     Route: 048
     Dates: start: 20051130
  22. LOPERAMIDE HCL [Concomitant]
     Route: 048
     Dates: start: 20110111
  23. RINDERON-VG [Concomitant]
     Route: 048
     Dates: start: 20060111
  24. ACUATIM [Concomitant]
     Dates: start: 20081119
  25. FLAGYL [Concomitant]
     Route: 048
     Dates: start: 19960709
  26. REMICADE [Suspect]
     Route: 042
     Dates: start: 20060419, end: 20060614
  27. ELENTAL [Concomitant]
     Dosage: DAILY DOSE 4 PAC
     Route: 048
     Dates: start: 19980304
  28. SCOPOLAMINE [Concomitant]
     Route: 048
     Dates: start: 19960329
  29. YAKUBAN [Concomitant]
     Dosage: 4 PACKS
     Route: 065
     Dates: start: 20060111
  30. ELENTAL [Concomitant]
     Dosage: DAILY DOSE 2 PAC
     Route: 048
     Dates: start: 20060126
  31. PREDNISOLONE [Concomitant]
     Route: 048
     Dates: start: 20051012
  32. SULFASALAZINE [Concomitant]
     Dosage: 8 TABLETS
     Route: 048
     Dates: start: 19960709
  33. EPADEL [Concomitant]
     Route: 048
     Dates: start: 20100915
  34. FAMOTIDINE [Concomitant]
     Route: 048
     Dates: start: 20060111
  35. ELENTAL [Concomitant]
     Dosage: DAILY DOSE 6 PAC
     Route: 048
     Dates: start: 19960823
  36. PREDNISOLONE [Concomitant]
     Route: 048
     Dates: start: 19980304
  37. BEZATOL SR [Concomitant]
     Route: 048
     Dates: start: 20060412

REACTIONS (5)
  - PYONEPHROSIS [None]
  - ABSCESS INTESTINAL [None]
  - NASOPHARYNGITIS [None]
  - PROSTATIC ABSCESS [None]
  - RASH PRURITIC [None]
